FAERS Safety Report 23637917 (Version 1)
Quarter: 2024Q1

REPORT INFORMATION
  Report Type: Spontaneous
  Country: PE (occurrence: PE)
  Receive Date: 20240315
  Receipt Date: 20240315
  Transmission Date: 20240410
  Serious: Yes (Other)
  Sender: FDA-Public Use
  Company Number: PE-009507513-2403PER004888

PATIENT
  Sex: Male
  Weight: 95 kg

DRUGS (3)
  1. INVANZ [Suspect]
     Active Substance: ERTAPENEM SODIUM
     Dosage: UNK
  2. XOLAIR [Suspect]
     Active Substance: OMALIZUMAB
     Dosage: UNK
  3. AMIKACIN [Suspect]
     Active Substance: AMIKACIN
     Dosage: UNK

REACTIONS (12)
  - Hepatitis [Unknown]
  - Nephritis [Unknown]
  - Immunology test abnormal [Not Recovered/Not Resolved]
  - Respiratory disorder [Recovered/Resolved]
  - Mite allergy [Unknown]
  - Pyrexia [Recovered/Resolved]
  - Asthma [Recovered/Resolved]
  - Weight decreased [Unknown]
  - Sinusitis [Unknown]
  - Bronchitis [Unknown]
  - Weight increased [Unknown]
  - Drug ineffective [Not Recovered/Not Resolved]

NARRATIVE: CASE EVENT DATE: 20230524
